FAERS Safety Report 15200892 (Version 2)
Quarter: 2018Q3

REPORT INFORMATION
  Report Type: Spontaneous
  Country: US (occurrence: US)
  Receive Date: 20180726
  Receipt Date: 20180808
  Transmission Date: 20181010
  Serious: Yes (Other)
  Sender: FDA-Public Use
  Company Number: US-AMGEN-USASP2018098036

PATIENT
  Age: 68 Year
  Sex: Female
  Weight: 68 kg

DRUGS (1)
  1. PROLIA [Suspect]
     Active Substance: DENOSUMAB
     Indication: OSTEOPOROSIS POSTMENOPAUSAL
     Dosage: 60 MG, Q6MO
     Route: 058
     Dates: start: 2013, end: 20171219

REACTIONS (5)
  - Exostosis of jaw [Not Recovered/Not Resolved]
  - Pain in jaw [Unknown]
  - Post procedural infection [Recovered/Resolved]
  - Osteomyelitis [Not Recovered/Not Resolved]
  - Oral pain [Not Recovered/Not Resolved]
